FAERS Safety Report 19857397 (Version 1)
Quarter: 2021Q3

REPORT INFORMATION
  Report Type: Spontaneous
  Country: CA (occurrence: CA)
  Receive Date: 20210920
  Receipt Date: 20210920
  Transmission Date: 20211014
  Serious: Yes (Hospitalization)
  Sender: FDA-Public Use
  Company Number: CA-TEVA-2021-CA-1954007

PATIENT
  Age: 69 Year
  Sex: Male

DRUGS (10)
  1. ELIQUIS [Concomitant]
     Active Substance: APIXABAN
  2. JAMP?VITAMIN D [Concomitant]
     Active Substance: CHOLECALCIFEROL
  3. PMS?METFORMIN ? TAB 500 MG [Concomitant]
  4. APO METOPROLOL (TYPE L)TAB 50 MG [Concomitant]
  5. APO?SIMVASTATIN [Concomitant]
     Active Substance: SIMVASTATIN
  6. JARDIANCE [Concomitant]
     Active Substance: EMPAGLIFLOZIN
  7. APO?FLECAINIDE [Concomitant]
     Active Substance: FLECAINIDE ACETATE
     Route: 065
  8. SANDOZ PERINDOPRIL ERBUMINE [Concomitant]
  9. AMIODARONE [Suspect]
     Active Substance: AMIODARONE
     Indication: HYPERTHYROIDISM
     Route: 065
  10. OZEMPIC MULTIDOSE PREFILLED PEN DISPENSES 1MG DOSE [Concomitant]

REACTIONS (2)
  - Thyroiditis [Unknown]
  - Cardiac flutter [Unknown]
